FAERS Safety Report 14914752 (Version 1)
Quarter: 2018Q2

REPORT INFORMATION
  Report Type: Spontaneous
  Country: US (occurrence: US)
  Receive Date: 20180518
  Receipt Date: 20180518
  Transmission Date: 20180711
  Serious: No
  Sender: FDA-Public Use
  Company Number: US-PFIZER INC-2018203571

PATIENT
  Age: 39 Year
  Sex: Male

DRUGS (2)
  1. DILANTIN [Suspect]
     Active Substance: PHENYTOIN
     Indication: SEIZURE
  2. DILANTIN [Suspect]
     Active Substance: PHENYTOIN
     Indication: FOCAL DYSCOGNITIVE SEIZURES
     Dosage: UNK

REACTIONS (2)
  - Product use in unapproved indication [Unknown]
  - Gingival hypertrophy [Unknown]
